FAERS Safety Report 8442958-X (Version None)
Quarter: 2012Q2

REPORT INFORMATION
  Report Type: 
  Country: None (occurrence: None)
  Receive Date: 20120615
  Receipt Date: 20120613
  Transmission Date: 20120825
  Serious: No
  Sender: FDA-Public Use
  Company Number: US-PFIZER INC-2012143453

PATIENT
  Sex: Female
  Weight: 73 kg

DRUGS (2)
  1. IBUPROFEN [Suspect]
     Indication: FIBROMYALGIA
     Dosage: 600-800MG DAILY
     Dates: start: 20110101, end: 20110801
  2. CELEBREX [Suspect]
     Indication: FIBROMYALGIA
     Dosage: 200 MG, DAILY
     Route: 048
     Dates: start: 19980101, end: 20120611

REACTIONS (6)
  - ASTHENIA [None]
  - HEADACHE [None]
  - ABDOMINAL DISCOMFORT [None]
  - FATIGUE [None]
  - MYALGIA [None]
  - EPISTAXIS [None]
